FAERS Safety Report 9779815 (Version 2)
Quarter: 2014Q1

REPORT INFORMATION
  Report Type: Spontaneous
  Country: CN (occurrence: CN)
  Receive Date: 20131223
  Receipt Date: 20140120
  Transmission Date: 20141002
  Serious: Yes (Other)
  Sender: FDA-Public Use
  Company Number: CN-GLAXOSMITHKLINE-B0954892A

PATIENT
  Sex: Male

DRUGS (1)
  1. FLIXONASE [Suspect]
     Indication: RHINITIS
     Dosage: 2PUFF PER DAY
     Route: 045
     Dates: start: 2013

REACTIONS (5)
  - Orbital oedema [Not Recovered/Not Resolved]
  - Ocular icterus [Not Recovered/Not Resolved]
  - Vision blurred [Not Recovered/Not Resolved]
  - Eye pain [Not Recovered/Not Resolved]
  - Hypersensitivity [Not Recovered/Not Resolved]
